FAERS Safety Report 11791473 (Version 1)
Quarter: 2015Q4

REPORT INFORMATION
  Report Type: Spontaneous
  Country: US (occurrence: US)
  Receive Date: 20151201
  Receipt Date: 20151201
  Transmission Date: 20160305
  Serious: No
  Sender: FDA-Public Use
  Company Number: US-ELI_LILLY_AND_COMPANY-US201511009615

PATIENT
  Sex: Female

DRUGS (2)
  1. HUMALOG [Suspect]
     Active Substance: INSULIN LISPRO
     Indication: PRODUCT USED FOR UNKNOWN INDICATION
     Dosage: 14 U, BID
     Route: 065
     Dates: start: 2010
  2. HUMALOG [Suspect]
     Active Substance: INSULIN LISPRO
     Dosage: 12 U, BID
     Route: 065
     Dates: start: 2010

REACTIONS (4)
  - Hypoacusis [Unknown]
  - Visual acuity reduced [Unknown]
  - Blood glucose decreased [Unknown]
  - Incorrect product storage [Unknown]
